FAERS Safety Report 17614689 (Version 1)
Quarter: 2020Q2

REPORT INFORMATION
  Report Type: Spontaneous
  Country: US (occurrence: US)
  Receive Date: 20200402
  Receipt Date: 20200402
  Transmission Date: 20200713
  Serious: No
  Sender: FDA-Public Use
  Company Number: US-009507513-2004USA000465

PATIENT
  Sex: Female

DRUGS (2)
  1. PROVENTIL [Suspect]
     Active Substance: ALBUTEROL
     Indication: LOWER RESPIRATORY TRACT CONGESTION
     Dosage: 1 OR 2 INHALATION EVERY 4 TO 6 HOURS AS NEEDED; 3 INHALERS
  2. PROVENTIL [Suspect]
     Active Substance: ALBUTEROL
     Dosage: 1 OR 2 INHALATION EVERY 4 TO 6 HOURS AS NEEDED; 3 INHALERS

REACTIONS (3)
  - Poor quality device used [Unknown]
  - Product dose omission [Unknown]
  - Product quality issue [Unknown]

NARRATIVE: CASE EVENT DATE: 2020
